FAERS Safety Report 4515103-0 (Version None)
Quarter: 2004Q4

REPORT INFORMATION
  Report Type: 
  Country: None (occurrence: None)
  Receive Date: 20041201
  Receipt Date: 20041124
  Transmission Date: 20050328
  Serious: Yes (Life-Threatening)
  Sender: FDA-Public Use
  Company Number: PHBS2004ES15812

PATIENT
  Age: 31 Year
  Sex: Male

DRUGS (2)
  1. VOLTAREN [Suspect]
     Dosage: 50 MG, TID
     Route: 048
     Dates: start: 20040616
  2. METHADONE [Concomitant]

REACTIONS (3)
  - GASTRECTOMY PARTIAL [None]
  - GASTROINTESTINAL HAEMORRHAGE [None]
  - SHOCK [None]
